FAERS Safety Report 18925378 (Version 1)
Quarter: 2021Q1

REPORT INFORMATION
  Report Type: Spontaneous
  Country: TR (occurrence: TR)
  Receive Date: 20210222
  Receipt Date: 20210222
  Transmission Date: 20210420
  Serious: Yes (Other)
  Sender: FDA-Public Use
  Company Number: TR-ELI_LILLY_AND_COMPANY-TR202102006983

PATIENT
  Age: 25 Year
  Sex: Female

DRUGS (2)
  1. COPELLOR [Suspect]
     Active Substance: IXEKIZUMAB
     Indication: PRODUCT USED FOR UNKNOWN INDICATION
     Dosage: LOADING DOSE (INDUCTION)
     Route: 065
  2. COPELLOR [Suspect]
     Active Substance: IXEKIZUMAB
     Dosage: MAINTENANCE DOSE
     Route: 065

REACTIONS (2)
  - Auditory disorder [Unknown]
  - Injection site reaction [Unknown]
